FAERS Safety Report 9855233 (Version 2)
Quarter: 2014Q1

REPORT INFORMATION
  Report Type: Spontaneous
  Country: US (occurrence: US)
  Receive Date: 20140130
  Receipt Date: 20140130
  Transmission Date: 20141002
  Serious: Yes (Hospitalization)
  Sender: FDA-Public Use
  Company Number: US-B.I. PHARMACEUTICALS,INC./RIDGEFIELD-2013-BI-30309BP

PATIENT
  Sex: Male
  Weight: 106.59 kg

DRUGS (8)
  1. PRADAXA [Suspect]
     Indication: ATRIAL FIBRILLATION
     Dosage: 300 MG
     Dates: start: 20111022, end: 20121028
  2. EXELON [Concomitant]
  3. PRILOSEC [Concomitant]
     Dosage: 80 MG
  4. COREG [Concomitant]
  5. METFORMIN [Concomitant]
  6. LIPITOR [Concomitant]
     Dosage: 40 MG
  7. TRICOR [Concomitant]
  8. FINASTERIDE [Concomitant]
     Indication: BENIGN PROSTATIC HYPERPLASIA
     Dosage: 5 MG

REACTIONS (1)
  - Lower gastrointestinal haemorrhage [Unknown]
